FAERS Safety Report 16133561 (Version 1)
Quarter: 2019Q1

REPORT INFORMATION
  Report Type: Spontaneous
  Country: NL (occurrence: NL)
  Receive Date: 20190329
  Receipt Date: 20190329
  Transmission Date: 20190418
  Serious: Yes (Hospitalization)
  Sender: FDA-Public Use
  Company Number: NL-ACCORD-116473

PATIENT
  Age: 58 Year
  Sex: Female
  Weight: 81 kg

DRUGS (14)
  1. CANDESARTAN. [Interacting]
     Active Substance: CANDESARTAN
     Indication: HYPERTENSION
     Dosage: 1DD, STRENGTH: 8 MG
     Dates: start: 201809, end: 20181218
  2. ACLIDINIUM BROMIDE. [Concomitant]
     Active Substance: ACLIDINIUM BROMIDE
     Dosage: 1DD, STRENGTH: 340 MG
  3. SEREVENT DISKUS [Concomitant]
     Active Substance: SALMETEROL XINAFOATE
     Dosage: 2DD2, STRENGTH: 25 MG,INHALATION
  4. METOPROLOL. [Concomitant]
     Active Substance: METOPROLOL
     Dosage: 1DD, STRENGTH: 25 MG
  5. SPIRONOLACTONE. [Suspect]
     Active Substance: SPIRONOLACTONE
     Indication: HYPOKALAEMIA
     Dosage: STRENGTH: 50 MG
     Dates: start: 201809, end: 20181217
  6. PHENPROCOUMON [Concomitant]
     Active Substance: PHENPROCOUMON
     Dosage: ACCORDING TO APPOINTMENT, STRENGTH: 3 MG
  7. LOSARTAN. [Concomitant]
     Active Substance: LOSARTAN
     Dosage: 1DD, STRENGTH: 50 MG
  8. FUROSEMIDE. [Concomitant]
     Active Substance: FUROSEMIDE
     Dosage: 2DD, STRENGTH: 40 MG
  9. IRON [Concomitant]
     Active Substance: IRON
     Dosage: STRENGTH: 200 MG
  10. ATORVASTATIN [Concomitant]
     Active Substance: ATORVASTATIN
     Dosage: 1DD, STRENGTH: 40 MG
  11. FORMOTEROL [Concomitant]
     Active Substance: FORMOTEROL
     Dosage: 1DD, STRENGTH: 12 MCG
  12. LITHIUM. [Interacting]
     Active Substance: LITHIUM
     Indication: BIPOLAR DISORDER
     Dosage: 2.5 P/DAY, STRENGTH: 400 MG
     Dates: start: 20181021, end: 20181217
  13. OMEPRAZOLE. [Concomitant]
     Active Substance: OMEPRAZOLE
     Dosage: 2DD, STRENGTH: 20 MG
  14. COLECALCIFEROL [Concomitant]
     Active Substance: CHOLECALCIFEROL
     Dosage: 1DD, STRENGTH: 800IE

REACTIONS (4)
  - Toxicity to various agents [Recovering/Resolving]
  - Acute kidney injury [Recovering/Resolving]
  - Hyperkalaemia [Recovered/Resolved]
  - Drug interaction [Unknown]

NARRATIVE: CASE EVENT DATE: 20181121
